FAERS Safety Report 12780829 (Version 1)
Quarter: 2016Q3

REPORT INFORMATION
  Report Type: Spontaneous
  Country: US (occurrence: US)
  Receive Date: 20160926
  Receipt Date: 20160926
  Transmission Date: 20161109
  Serious: Yes (Other)
  Sender: FDA-Public Use
  Company Number: US-SA-2016SA171880

PATIENT
  Age: 47 Year
  Sex: Male

DRUGS (2)
  1. INSULIN GLARGINE [Suspect]
     Active Substance: INSULIN GLARGINE
     Indication: DIABETES MELLITUS
     Route: 065
  2. INSULIN GLARGINE [Suspect]
     Active Substance: INSULIN GLARGINE
     Indication: DIABETES MELLITUS
     Dosage: NIGHTLY
     Route: 065

REACTIONS (7)
  - Hypoglycaemia [Recovered/Resolved]
  - Parkinsonism [Recovering/Resolving]
  - Bradykinesia [Unknown]
  - Vasogenic cerebral oedema [Recovering/Resolving]
  - Cytotoxic oedema [Recovered/Resolved]
  - Chorea [Recovered/Resolved]
  - Cerebral haemorrhage [Unknown]
